FAERS Safety Report 23493356 (Version 1)
Quarter: 2024Q1

REPORT INFORMATION
  Report Type: Spontaneous
  Country: US (occurrence: None)
  Receive Date: 20240206
  Receipt Date: 20240206
  Transmission Date: 20240410
  Serious: Yes (unspecified)
  Sender: FDA-Public Use
  Company Number: None

PATIENT
  Age: 10 Year
  Sex: Female
  Weight: 31.5 kg

DRUGS (1)
  1. DERMOPLAST PAIN RELIEVING [Suspect]
     Active Substance: BENZOCAINE\MENTHOL
     Indication: Wound
     Dosage: OTHER FREQUENCY : USED TWICE;?OTHER ROUTE : SPRAY;?
     Route: 050

REACTIONS (1)
  - Rash [None]

NARRATIVE: CASE EVENT DATE: 20240130
